FAERS Safety Report 7631024-9 (Version None)
Quarter: 2011Q3

REPORT INFORMATION
  Report Type: 
  Country: None (occurrence: None)
  Receive Date: 20110725
  Receipt Date: 20110714
  Transmission Date: 20111222
  Serious: No
  Sender: FDA-Public Use
  Company Number: US-BIOGENIDEC-2011BI026361

PATIENT
  Age: 37 Year
  Sex: Female

DRUGS (4)
  1. AVONEX [Suspect]
     Indication: MULTIPLE SCLEROSIS
     Route: 030
     Dates: start: 20050824
  2. AVONEX [Suspect]
     Route: 030
     Dates: start: 20030101, end: 20040201
  3. IV FLUIDS (NOS) [Concomitant]
     Indication: BLOOD PRESSURE DECREASED
  4. AVONEX [Suspect]
     Route: 030
     Dates: start: 20010224, end: 20030101

REACTIONS (2)
  - NERVOUS SYSTEM DISORDER [None]
  - GAIT DISTURBANCE [None]
